FAERS Safety Report 20200554 (Version 2)
Quarter: 2021Q4

REPORT INFORMATION
  Report Type: Report from Study
  Country: US (occurrence: US)
  Receive Date: 20211217
  Receipt Date: 20211220
  Transmission Date: 20220303
  Serious: No
  Sender: FDA-Public Use
  Company Number: US-BRISTOL-MYERS SQUIBB COMPANY-BMS-2021-138162

PATIENT
  Age: 68 Year
  Sex: Female
  Weight: 72.562 kg

DRUGS (1)
  1. APIXABAN [Suspect]
     Active Substance: APIXABAN
     Indication: Deep vein thrombosis
     Dosage: UNK
     Route: 065
     Dates: start: 202110

REACTIONS (3)
  - Alopecia [Unknown]
  - Mental disorder [Unknown]
  - Panic attack [Unknown]

NARRATIVE: CASE EVENT DATE: 20211101
